FAERS Safety Report 13373587 (Version 2)
Quarter: 2017Q2

REPORT INFORMATION
  Report Type: Spontaneous
  Country: FR (occurrence: FR)
  Receive Date: 20170327
  Receipt Date: 20170407
  Transmission Date: 20170830
  Serious: Yes (Hospitalization)
  Sender: FDA-Public Use
  Company Number: FR-B. BRAUN MEDICAL INC.-1064681

PATIENT
  Age: 54 Year
  Sex: Male

DRUGS (13)
  1. METRONIDAZOLE. [Suspect]
     Active Substance: METRONIDAZOLE
     Indication: ANTIBIOTIC THERAPY
     Route: 042
     Dates: start: 20170213, end: 20170217
  2. VESICARE [Concomitant]
     Active Substance: SOLIFENACIN SUCCINATE
  3. LYRICA [Concomitant]
     Active Substance: PREGABALIN
  4. PROZAC [Concomitant]
     Active Substance: FLUOXETINE HYDROCHLORIDE
  5. COLCHICINE. [Concomitant]
     Active Substance: COLCHICINE
  6. MICARDIS [Concomitant]
     Active Substance: TELMISARTAN
  7. VALIUM [Concomitant]
     Active Substance: DIAZEPAM
  8. CEFTRIAXONE. [Concomitant]
     Active Substance: CEFTRIAXONE
  9. OGASTORO [Concomitant]
     Active Substance: LANSOPRAZOLE
  10. COUMADIN [Concomitant]
     Active Substance: WARFARIN SODIUM
  11. KARDEGIC [Concomitant]
     Active Substance: ASPIRIN LYSINE
  12. FUMAFER [Concomitant]
     Active Substance: FERROUS FUMARATE
  13. FLAGYL [Suspect]
     Active Substance: METRONIDAZOLE\METRONIDAZOLE HYDROCHLORIDE
     Route: 048
     Dates: start: 20170223, end: 20170227

REACTIONS (1)
  - Hepatocellular injury [Recovering/Resolving]

NARRATIVE: CASE EVENT DATE: 20170227
